FAERS Safety Report 7660816-5 (Version None)
Quarter: 2011Q3

REPORT INFORMATION
  Report Type: 
  Country: None (occurrence: None)
  Receive Date: 20110805
  Receipt Date: 20101105
  Transmission Date: 20111222
  Serious: No
  Sender: FDA-Public Use
  Company Number: US-ABBOTT-10P-163-0684152-00

PATIENT
  Sex: Male
  Weight: 74.91 kg

DRUGS (2)
  1. NIASPAN [Suspect]
     Indication: HIGH DENSITY LIPOPROTEIN DECREASED
     Dates: start: 20040101, end: 20060101
  2. UNKNOWN MAN'S MEDICATION [Interacting]
     Indication: ERECTILE DYSFUNCTION

REACTIONS (2)
  - DRUG INTERACTION [None]
  - PRURITUS [None]
